FAERS Safety Report 16957199 (Version 5)
Quarter: 2020Q2

REPORT INFORMATION
  Report Type: Report from Study
  Country: IT (occurrence: IT)
  Receive Date: 20191024
  Receipt Date: 20200612
  Transmission Date: 20200713
  Serious: Yes (Other)
  Sender: FDA-Public Use
  Company Number: PHHY2018IT165143

PATIENT
  Age: 69 Year
  Sex: Female

DRUGS (22)
  1. TRAMETINIB [Suspect]
     Active Substance: TRAMETINIB
     Indication: METASTATIC MALIGNANT MELANOMA
     Dosage: 2 OT
     Route: 065
     Dates: start: 20180828, end: 20181031
  2. TAFINLAR [Suspect]
     Active Substance: DABRAFENIB MESYLATE
     Dosage: 300 OT, UNK
     Route: 065
     Dates: start: 20190913
  3. PARACODOL [Concomitant]
     Indication: PAIN
     Dosage: 530 OT, UNK
     Route: 048
     Dates: start: 20180828
  4. TAFINLAR [Suspect]
     Active Substance: DABRAFENIB MESYLATE
     Indication: METASTATIC MALIGNANT MELANOMA
     Dosage: 300 OT, UNK
     Route: 065
     Dates: start: 20180828, end: 20181031
  5. TAFINLAR [Suspect]
     Active Substance: DABRAFENIB MESYLATE
     Dosage: 300 OT, UNK
     Route: 065
     Dates: start: 20190213, end: 20190801
  6. TRAMETINIB [Suspect]
     Active Substance: TRAMETINIB
     Dosage: 2 OT
     Route: 065
     Dates: start: 20190913
  7. TAFINLAR [Suspect]
     Active Substance: DABRAFENIB MESYLATE
     Dosage: 300 OT, UNK
     Route: 065
     Dates: start: 20181109, end: 20190201
  8. TAFINLAR [Suspect]
     Active Substance: DABRAFENIB MESYLATE
     Dosage: 300 OT, UNK
     Route: 065
     Dates: start: 20190202, end: 20190212
  9. TAFINLAR [Suspect]
     Active Substance: DABRAFENIB MESYLATE
     Dosage: 300 OT, UNK
     Route: 065
     Dates: start: 20181101, end: 20181108
  10. TRAMETINIB [Suspect]
     Active Substance: TRAMETINIB
     Dosage: 2 OT
     Route: 065
     Dates: start: 20190202, end: 20190212
  11. FLUCONAZOLO [Concomitant]
     Indication: FUNGAL INFECTION
     Dosage: 100 OT, UNK
     Route: 048
     Dates: start: 20181101, end: 20181112
  12. TAFINLAR [Suspect]
     Active Substance: DABRAFENIB MESYLATE
     Dosage: UNK
     Route: 065
  13. TRAMETINIB [Suspect]
     Active Substance: TRAMETINIB
     Dosage: 2 OT
     Route: 065
     Dates: start: 20181101, end: 20181108
  14. DEXAMETHASONE. [Concomitant]
     Active Substance: DEXAMETHASONE
     Indication: FUNGAL INFECTION
     Dosage: 32 OT, UNK
     Route: 048
     Dates: start: 20181101, end: 20181112
  15. TRAMETINIB [Suspect]
     Active Substance: TRAMETINIB
     Dosage: 2 OT
     Route: 065
     Dates: start: 20181109, end: 20190201
  16. TRAMETINIB [Suspect]
     Active Substance: TRAMETINIB
     Dosage: 2 OT
     Route: 065
     Dates: start: 20190213, end: 20190801
  17. DENOSUMAB [Concomitant]
     Active Substance: DENOSUMAB
     Indication: METASTASES TO BONE
     Dosage: 120 OT, UNK
     Route: 058
     Dates: start: 20180828, end: 20200327
  18. DENOSUMAB [Concomitant]
     Active Substance: DENOSUMAB
     Indication: BONE PAIN
  19. MICONAZOLE. [Concomitant]
     Active Substance: MICONAZOLE
     Indication: FUNGAL INFECTION
     Dosage: 3 OT, UNK
     Route: 061
     Dates: start: 20181101, end: 20181112
  20. TACHIDOL [Concomitant]
     Active Substance: ACETAMINOPHEN\CODEINE PHOSPHATE
     Indication: PAIN
     Dosage: 530 OT, UNK
     Route: 048
     Dates: start: 20180828
  21. OMEPRAZOLO ABC [Concomitant]
     Indication: PROPHYLAXIS
     Dosage: 20 MG
     Route: 048
     Dates: start: 20191014
  22. MOUTH WASH [Concomitant]
     Indication: FUNGAL INFECTION
     Dosage: 1 OT, UNK
     Route: 048
     Dates: start: 20181024, end: 20190212

REACTIONS (11)
  - Stomatitis [Recovered/Resolved]
  - Stomatitis [Recovered/Resolved]
  - Stomatitis [Recovered/Resolved]
  - Hypertension [Recovered/Resolved]
  - Dysphonia [Recovered/Resolved]
  - Hypertensive crisis [Recovered/Resolved]
  - Hypertension [Recovered/Resolved]
  - Blood cholesterol increased [Recovered/Resolved]
  - Atrial fibrillation [Recovered/Resolved with Sequelae]
  - Stomatitis [Recovered/Resolved]
  - Pyrexia [Recovered/Resolved]

NARRATIVE: CASE EVENT DATE: 20180908
